FAERS Safety Report 13996286 (Version 8)
Quarter: 2020Q2

REPORT INFORMATION
  Report Type: Report from Study
  Country: DE (occurrence: DE)
  Receive Date: 20170921
  Receipt Date: 20200403
  Transmission Date: 20200713
  Serious: Yes (Other)
  Sender: FDA-Public Use
  Company Number: PHHY2017DE136778

PATIENT
  Age: 39 Year
  Sex: Male
  Weight: 83 kg

DRUGS (4)
  1. COSENTYX [Suspect]
     Active Substance: SECUKINUMAB
     Dosage: 300 MG, UNK
     Route: 058
     Dates: start: 20151029
  2. COSENTYX [Suspect]
     Active Substance: SECUKINUMAB
     Dosage: UNK
     Route: 065
  3. COSENTYX [Suspect]
     Active Substance: SECUKINUMAB
     Dosage: 300 MG, UNK
     Route: 058
     Dates: start: 20170622
  4. COSENTYX [Suspect]
     Active Substance: SECUKINUMAB
     Indication: PSORIASIS
     Dosage: 300 MG, UNK
     Route: 058
     Dates: start: 20150903, end: 20151028

REACTIONS (9)
  - Herpes zoster [Recovering/Resolving]
  - Neuralgia [Recovering/Resolving]
  - Respiratory tract infection [Recovered/Resolved]
  - Respiratory tract infection [Recovered/Resolved]
  - Neuralgia [Recovered/Resolved with Sequelae]
  - Pharyngitis [Recovered/Resolved]
  - Genital infection [Recovered/Resolved]
  - Product use in unapproved indication [Unknown]
  - Rhinitis [Recovered/Resolved]

NARRATIVE: CASE EVENT DATE: 20170701
